FAERS Safety Report 5056191-5 (Version None)
Quarter: 2006Q3

REPORT INFORMATION
  Report Type: 
  Country: None (occurrence: None)
  Receive Date: 20060720
  Receipt Date: 20060710
  Transmission Date: 20061208
  Serious: Yes (Hospitalization)
  Sender: FDA-Public Use
  Company Number: US-AVENTIS-200617219GDDC

PATIENT
  Age: 65 Year
  Sex: Male
  Weight: 97.52 kg

DRUGS (9)
  1. DOCETAXEL [Suspect]
     Indication: NEOPLASM MALIGNANT
     Route: 042
     Dates: start: 20060626, end: 20060626
  2. ERBITUX [Suspect]
     Indication: NEOPLASM MALIGNANT
     Dosage: DOSE: LOADING DOSE 400 MG/M2 THEN 250 MG/M2
     Route: 042
     Dates: start: 20060522, end: 20060522
  3. RADIOTHERAPY [Suspect]
     Indication: NEOPLASM MALIGNANT
     Dates: end: 20060629
  4. ATENOLOL [Concomitant]
     Dosage: DOSE: UNK
  5. CIALIS [Concomitant]
     Dosage: DOSE: UNK
  6. HYZAAR [Concomitant]
     Dosage: DOSE: UNK
  7. NORVASC [Concomitant]
     Dosage: DOSE: UNK
  8. OXYCODONE HCL [Concomitant]
     Dosage: DOSE: UNK
  9. PILOCARPINE [Concomitant]
     Dosage: DOSE: UNK

REACTIONS (13)
  - ALANINE AMINOTRANSFERASE INCREASED [None]
  - ASPARTATE AMINOTRANSFERASE INCREASED [None]
  - ASTHENIA [None]
  - ATRIAL FIBRILLATION [None]
  - BLOOD CREATINE PHOSPHOKINASE INCREASED [None]
  - DEHYDRATION [None]
  - DIARRHOEA [None]
  - DIZZINESS [None]
  - LOSS OF CONSCIOUSNESS [None]
  - OESOPHAGITIS [None]
  - RASH [None]
  - RENAL FAILURE ACUTE [None]
  - RHABDOMYOLYSIS [None]
